FAERS Safety Report 7764608-8 (Version None)
Quarter: 2011Q3

REPORT INFORMATION
  Report Type: 
  Country: None (occurrence: None)
  Receive Date: 20110921
  Receipt Date: 20110907
  Transmission Date: 20111222
  Serious: Yes (Hospitalization, Other)
  Sender: FDA-Public Use
  Company Number: PHHO2008DE10934

PATIENT
  Sex: Male
  Weight: 84 kg

DRUGS (4)
  1. NO TREATMENT RECEIVED [Suspect]
     Dosage: UNK
  2. PREDNISONE [Suspect]
     Indication: RENAL TRANSPLANT
     Dosage: 10 MG / DAY
     Route: 048
     Dates: start: 20080223
  3. MYFORTIC [Suspect]
     Indication: RENAL TRANSPLANT
     Dosage: UNK
     Route: 048
     Dates: start: 20080223, end: 20080502
  4. SANDIMMUNE [Suspect]
     Indication: RENAL TRANSPLANT
     Dosage: 175 MG, BID
     Route: 048
     Dates: start: 20080223

REACTIONS (6)
  - CYTOMEGALOVIRUS INFECTION [None]
  - COMPLICATIONS OF TRANSPLANTED KIDNEY [None]
  - STOMATITIS [None]
  - UROSEPSIS [None]
  - HERPES SIMPLEX [None]
  - TUBULOINTERSTITIAL NEPHRITIS [None]
